FAERS Safety Report 4459565-6 (Version None)
Quarter: 2004Q3

REPORT INFORMATION
  Report Type: 
  Country: None (occurrence: None)
  Receive Date: 20040910
  Receipt Date: 20040607
  Transmission Date: 20050211
  Serious: No
  Sender: FDA-Public Use
  Company Number: 2004217506US

PATIENT

DRUGS (2)
  1. BEXTRA [Suspect]
     Dosage: 10 + 20 MG, PRN
     Dates: start: 20040501, end: 20040501
  2. BEXTRA [Suspect]
     Dosage: 10 + 20 MG, PRN
     Dates: start: 20040501

REACTIONS (2)
  - AMNESIA [None]
  - DRUG INEFFECTIVE [None]
